FAERS Safety Report 10043202 (Version 1)
Quarter: 2014Q1

REPORT INFORMATION
  Report Type: Spontaneous
  Country: US (occurrence: None)
  Receive Date: 20140327
  Receipt Date: 20140327
  Transmission Date: 20141002
  Serious: Yes (Hospitalization, Disabling, Other)
  Sender: FDA-Public Use
  Company Number: None

PATIENT
  Age: 22 Year
  Sex: Female

DRUGS (3)
  1. BACTRIM [Suspect]
     Indication: INFECTION PROPHYLAXIS
     Dosage: 1 PILL EVERY OTHER DAY
     Route: 048
     Dates: start: 20140306, end: 20140326
  2. BACTRIM [Suspect]
     Indication: ENDOSCOPIC RETROGRADE CHOLANGIOPANCREATOGRAPHY
     Dosage: 1 PILL EVERY OTHER DAY
     Route: 048
     Dates: start: 20140306, end: 20140326
  3. BACTRIM [Suspect]
     Indication: STENT PLACEMENT
     Dosage: 1 PILL EVERY OTHER DAY
     Route: 048
     Dates: start: 20140306, end: 20140326

REACTIONS (2)
  - Pyrexia [None]
  - Infection [None]
